FAERS Safety Report 17482620 (Version 1)
Quarter: 2020Q1

REPORT INFORMATION
  Report Type: Spontaneous
  Country: CH (occurrence: CH)
  Receive Date: 20200302
  Receipt Date: 20200302
  Transmission Date: 20200409
  Serious: Yes (Hospitalization, Other)
  Sender: FDA-Public Use
  Company Number: CH-TEVA-2020-CH-1193735

PATIENT
  Age: 51 Year
  Sex: Male
  Weight: 88 kg

DRUGS (22)
  1. COPAXONE [Suspect]
     Active Substance: GLATIRAMER ACETATE
     Dates: start: 200306, end: 200407
  2. TYSABRI [Suspect]
     Active Substance: NATALIZUMAB
     Dates: start: 200901, end: 201111
  3. DITROPAN [Concomitant]
     Active Substance: OXYBUTYNIN CHLORIDE
     Dates: start: 201502
  4. LANTUS [Concomitant]
     Active Substance: INSULIN GLARGINE
     Dates: start: 2019
  5. TOVIAZ [Concomitant]
     Active Substance: FESOTERODINE FUMARATE
     Dates: start: 201009
  6. CIPRALEX [Concomitant]
     Active Substance: ESCITALOPRAM OXALATE
     Dates: start: 2004
  7. PERINDOPRIL [Concomitant]
     Active Substance: PERINDOPRIL
  8. GILENYA [Suspect]
     Active Substance: FINGOLIMOD HYDROCHLORIDE
     Dates: start: 20130213
  9. TIMONIL [Suspect]
     Active Substance: CARBAMAZEPINE
     Route: 048
     Dates: start: 201301
  10. BETAFERON [Concomitant]
     Active Substance: INTERFERON BETA-1B
  11. LIORESAL [Concomitant]
     Active Substance: BACLOFEN
     Route: 048
     Dates: start: 2010
  12. LIORESAL [Concomitant]
     Active Substance: BACLOFEN
     Route: 037
     Dates: start: 20151014
  13. PREGABALINUM [Concomitant]
     Dates: start: 200705
  14. MITOXANTRONE [Suspect]
     Active Substance: MITOXANTRONE HYDROCHLORIDE
     Dosage: CUMULATIVELY  207 MG I.V. FROM 10.12.2001 - 11.11.2002 AND 05.07.2004 - 12/2004
     Dates: start: 20011210, end: 200412
  15. TIMONIL [Suspect]
     Active Substance: CARBAMAZEPINE
     Route: 048
     Dates: start: 201301
  16. REBIF [Concomitant]
     Active Substance: INTERFERON BETA-1A
     Dates: start: 20050331, end: 200901
  17. ACIMETHIN [Concomitant]
  18. NOVORAPID [Concomitant]
     Active Substance: INSULIN ASPART
     Dosage: AS NECESSARY
     Dates: start: 2019
  19. TRILEPTAL [Concomitant]
     Active Substance: OXCARBAZEPINE
     Dates: start: 200610, end: 200705
  20. METFORMIN AXAPHARM [Concomitant]
     Dates: start: 2012
  21. CETALLERG [Concomitant]
     Active Substance: CETIRIZINE HYDROCHLORIDE
     Dates: start: 201912
  22. ELTROXIN [Concomitant]
     Active Substance: LEVOTHYROXINE
     Dates: start: 2007

REACTIONS (1)
  - Cutaneous T-cell lymphoma [Not Recovered/Not Resolved]

NARRATIVE: CASE EVENT DATE: 20191231
